FAERS Safety Report 23474279 (Version 1)
Quarter: 2024Q1

REPORT INFORMATION
  Report Type: Report from Study
  Country: US (occurrence: US)
  Receive Date: 20240204
  Receipt Date: 20240204
  Transmission Date: 20240409
  Serious: Yes (Other)
  Sender: FDA-Public Use
  Company Number: US-EXELIXIS-CABO-23061043

PATIENT
  Age: 51 Year
  Sex: Male

DRUGS (3)
  1. CABOMETYX [Suspect]
     Active Substance: CABOZANTINIB S-MALATE
     Indication: Renal cell carcinoma
     Dosage: 40 MG, QD
     Route: 048
     Dates: start: 20220419, end: 20230331
  2. NIVOLUMAB [Concomitant]
     Active Substance: NIVOLUMAB
     Dosage: UNK, Q2WEEKS
  3. IPILIMUMAB [Concomitant]
     Active Substance: IPILIMUMAB
     Dosage: UNK

REACTIONS (6)
  - Malignant neoplasm progression [Unknown]
  - Metastases to adrenals [Unknown]
  - Anaemia [Unknown]
  - Rash erythematous [Unknown]
  - Dry skin [Unknown]
  - Diarrhoea [Recovering/Resolving]

NARRATIVE: CASE EVENT DATE: 20230201
